FAERS Safety Report 8776858 (Version 2)
Quarter: 2012Q4

REPORT INFORMATION
  Report Type: 
  Country: DE (occurrence: US)
  Receive Date: 20120911
  Receipt Date: 20121116
  Transmission Date: 20130627
  Serious: Yes (Hospitalization, Other)
  Sender: FDA-Public Use
  Company Number: US-GENZYME-LEUK-1000198

PATIENT
  Age: 59 Year
  Sex: Male
  Weight: 125 kg

DRUGS (25)
  1. LEUKINE [Suspect]
     Indication: MALIGNANT MELANOMA
     Dosage: 250 mcg, qd
     Route: 058
     Dates: start: 20110729, end: 20110811
  2. LEUKINE [Suspect]
     Dosage: 125 mcg, qd
     Route: 058
     Dates: start: 20110909
  3. LEUKINE [Suspect]
     Dosage: 250 mcg, qd
     Route: 058
     Dates: start: 20110819, end: 20110901
  4. LEUKINE [Suspect]
     Dosage: 250 mcg, qd
     Route: 058
     Dates: start: 20110708, end: 20110721
  5. LEUKINE [Suspect]
     Dosage: 250 mcg, qd
     Route: 058
     Dates: start: 20110617, end: 20110630
  6. LEUKINE [Suspect]
     Dosage: 250 mcg/day, qd
     Route: 058
     Dates: start: 20110527, end: 20110609
  7. LEUKINE [Suspect]
     Dosage: 250 mcg, qd
     Route: 058
     Dates: start: 20110506, end: 20110519
  8. LEUKINE [Suspect]
     Dosage: 250 mcg, qd
     Route: 058
     Dates: start: 20110415, end: 20110428
  9. LEUKINE [Suspect]
     Dosage: 250 mcg, qd
     Route: 058
     Dates: start: 20110325, end: 20110407
  10. LEUKINE [Suspect]
     Dosage: 250 mcg, qd
     Route: 058
     Dates: start: 20110304, end: 20110317
  11. IPILIMUMAB [Suspect]
     Indication: MALIGNANT MELANOMA
     Dosage: 10 mg/kg, once
     Route: 042
     Dates: start: 20110729, end: 20110729
  12. IPILIMUMAB [Suspect]
     Dosage: 10 mg/kg, once
     Route: 042
     Dates: start: 20110909, end: 20110909
  13. IPILIMUMAB [Suspect]
     Dosage: 10 mg/kg, once
     Route: 042
     Dates: start: 20110819, end: 20110819
  14. IPILIMUMAB [Suspect]
     Dosage: 10 mg/kg, once
     Route: 042
     Dates: start: 20110708, end: 20110708
  15. IPILIMUMAB [Suspect]
     Dosage: 10 mg/kg, once
     Route: 042
     Dates: start: 20110617, end: 20110617
  16. IPILIMUMAB [Suspect]
     Dosage: 10 mg/kg, once
     Route: 042
     Dates: start: 20110527, end: 20110527
  17. IPILIMUMAB [Suspect]
     Dosage: 10 mg/kg, once
     Route: 042
     Dates: start: 20110506, end: 20110506
  18. IPILIMUMAB [Suspect]
     Dosage: 10 mg/kg, once
     Route: 042
     Dates: start: 20110415, end: 20110415
  19. IPILIMUMAB [Suspect]
     Dosage: 10 mg/kg, once
     Route: 042
     Dates: start: 20110325, end: 20110325
  20. IPILIMUMAB [Suspect]
     Dosage: 10 mg/kg, once
     Route: 042
     Dates: start: 20110304, end: 20110304
  21. COMBIGAN [Concomitant]
     Indication: PRODUCT USED FOR UNKNOWN INDICATION
     Dosage: UNK
     Route: 065
     Dates: start: 20101117
  22. MULTIVITAMIN [Concomitant]
     Indication: PRODUCT USED FOR UNKNOWN INDICATION
     Dosage: UNK
     Route: 065
     Dates: start: 20101025
  23. BENADRYL [Concomitant]
     Indication: PRODUCT USED FOR UNKNOWN INDICATION
     Dosage: UNK
     Route: 065
     Dates: start: 20110416
  24. INVESTIGATIONAL DRUG [Concomitant]
     Indication: PRODUCT USED FOR UNKNOWN INDICATION
     Dosage: UNK
     Route: 065
  25. RESTORIL [Concomitant]
     Indication: PRODUCT USED FOR UNKNOWN INDICATION
     Dosage: UNK
     Route: 065

REACTIONS (3)
  - Joint range of motion decreased [Recovered/Resolved]
  - Adrenal insufficiency [Not Recovered/Not Resolved]
  - Decreased appetite [Recovered/Resolved]
